FAERS Safety Report 9001670 (Version 1)
Quarter: 2013Q1

REPORT INFORMATION
  Report Type: Spontaneous
  Country: HR (occurrence: HR)
  Receive Date: 20130107
  Receipt Date: 20130107
  Transmission Date: 20140127
  Serious: Yes (Other)
  Sender: FDA-Public Use
  Company Number: PHHY2013HR001169

PATIENT
  Age: 33 Year
  Sex: Female

DRUGS (3)
  1. AZITHROMYCIN [Suspect]
     Indication: BACTERIURIA
     Route: 048
     Dates: start: 20121102, end: 20121104
  2. SINERSUL [Suspect]
     Indication: BACTERIURIA
     Dosage: 500 MG, QD
     Route: 048
     Dates: start: 20121101, end: 20121102
  3. NIBEL [Concomitant]
     Indication: HYPERTENSION
     Dosage: 2.5 MG, QD

REACTIONS (6)
  - Drug-induced liver injury [Recovered/Resolved]
  - Alanine aminotransferase increased [Recovered/Resolved]
  - Aspartate aminotransferase increased [Recovered/Resolved]
  - Abdominal pain [Recovered/Resolved]
  - Cholestasis [Recovered/Resolved]
  - Amylase increased [Recovered/Resolved]
